FAERS Safety Report 9115216 (Version 3)
Quarter: 2013Q2

REPORT INFORMATION
  Report Type: Spontaneous
  Country: IT (occurrence: IT)
  Receive Date: 20130225
  Receipt Date: 20130422
  Transmission Date: 20140414
  Serious: Yes (Other)
  Sender: FDA-Public Use
  Company Number: IT-AMGEN-ITASP2013012633

PATIENT
  Age: 58 Year
  Sex: Male

DRUGS (5)
  1. ENBREL [Suspect]
     Indication: RHEUMATOID ARTHRITIS
     Dosage: 25 MG, 2X/WEEK
     Dates: start: 20050905, end: 20121112
  2. LEFLUNOMIDE [Suspect]
     Indication: RHEUMATOID ARTHRITIS
     Dosage: 20 MG, 1X/DAY
     Dates: start: 20070201, end: 20091012
  3. LEFLUNOMIDE [Suspect]
     Dosage: 20 MG, ALTERNATE DAY
     Dates: end: 20120326
  4. NEO-LOTAN PLUS [Concomitant]
     Dosage: 100 MG + 25 MG
  5. NORVASC [Concomitant]
     Dosage: 5 MG, 1X/DAY

REACTIONS (1)
  - Pancreatitis [Not Recovered/Not Resolved]
